FAERS Safety Report 8591627-4 (Version None)
Quarter: 2012Q3

REPORT INFORMATION
  Report Type: 
  Country: None (occurrence: None)
  Receive Date: 20120814
  Receipt Date: 20120802
  Transmission Date: 20120928
  Serious: Yes (Other)
  Sender: FDA-Public Use
  Company Number: CL-JNJFOC-20120609246

PATIENT

DRUGS (1)
  1. TOPIRAMATE [Suspect]
     Indication: STATUS EPILEPTICUS
     Route: 048

REACTIONS (20)
  - SPEECH DISORDER [None]
  - CONFUSIONAL STATE [None]
  - HYPERCALCIURIA [None]
  - ALKALOSIS [None]
  - HEADACHE [None]
  - NYSTAGMUS [None]
  - DEPRESSION [None]
  - SLOW SPEECH [None]
  - NERVOUSNESS [None]
  - DISTURBANCE IN ATTENTION [None]
  - PARAESTHESIA ORAL [None]
  - GLAUCOMA [None]
  - WEIGHT DECREASED [None]
  - NEPHROLITHIASIS [None]
  - MYOPIA [None]
  - TREMOR [None]
  - SOMNOLENCE [None]
  - MENTAL IMPAIRMENT [None]
  - DYSARTHRIA [None]
  - GAIT DISTURBANCE [None]
